FAERS Safety Report 8340217-7 (Version None)
Quarter: 2012Q2

REPORT INFORMATION
  Report Type: 
  Country: None (occurrence: None)
  Receive Date: 20120507
  Receipt Date: 20120501
  Transmission Date: 20120825
  Serious: Yes (Other)
  Sender: FDA-Public Use
  Company Number: US-PFIZER INC-2012026005

PATIENT
  Sex: Female
  Weight: 145.13 kg

DRUGS (7)
  1. NEURONTIN [Suspect]
     Dosage: 1200 MG (800MG TABLET AND 400MG CAPSULE), 3X/DAY
     Route: 048
     Dates: start: 20110101
  2. TOPROL-XL [Concomitant]
     Dosage: UNK
  3. NEURONTIN [Suspect]
     Dosage: THREE 300MG CAPSULES, 3X/DAY
     Route: 048
     Dates: end: 20110101
  4. VENTOLIN [Concomitant]
     Indication: DYSPNOEA
     Dosage: 10% ONCE EVERY FOUR HOURS
  5. TOPROL-XL [Concomitant]
     Dosage: 200 MG, 2X/DAY
     Dates: start: 20090101
  6. NEURONTIN [Suspect]
     Indication: NEUROPATHY PERIPHERAL
     Dosage: 100 MG, 3X/DAY
     Route: 048
     Dates: start: 20080101
  7. BACTRIM DS [Concomitant]
     Dosage: 800-160  TWICE DAILY

REACTIONS (5)
  - NASOPHARYNGITIS [None]
  - MENINGITIS [None]
  - MENISCUS LESION [None]
  - EAR PAIN [None]
  - INFECTION [None]
